FAERS Safety Report 4487523-4 (Version None)
Quarter: 2004Q3

REPORT INFORMATION
  Report Type: 
  Country: None (occurrence: None)
  Receive Date: 20040921
  Receipt Date: 20040217
  Transmission Date: 20050211
  Serious: Yes (Death)
  Sender: FDA-Public Use
  Company Number: 028-20785-04020478

PATIENT
  Age: 41 Year
  Sex: Male

DRUGS (7)
  1. THALOMID [Suspect]
     Indication: METASTATIC MALIGNANT MELANOMA
     Dosage: 200 MG, QHS DAILY, ORAL
     Route: 048
     Dates: start: 20031203, end: 20031201
  2. DILAUDID [Concomitant]
  3. DECADRON [Concomitant]
  4. CELEXA [Concomitant]
  5. CLAVULIN (CLAVULIN) [Concomitant]
  6. PROCHLORPERAZINE [Concomitant]
  7. COUMADIN [Concomitant]

REACTIONS (1)
  - DEATH [None]
